FAERS Safety Report 24606774 (Version 1)
Quarter: 2024Q4

REPORT INFORMATION
  Report Type: Spontaneous
  Country: US (occurrence: US)
  Receive Date: 20241112
  Receipt Date: 20241112
  Transmission Date: 20250115
  Serious: Yes (Other)
  Sender: CHEPLAPHARM
  Company Number: None

PATIENT
  Age: 48 Year
  Sex: Female

DRUGS (13)
  1. CAPECITABINE [Suspect]
     Active Substance: CAPECITABINE
     Indication: Hormone receptor negative HER2 positive breast cancer
     Dosage: TWICE DAILY/GIVEN ON DAYS 1?14 OF A 21 DAY CYCLE?DAILY DOSE: 2000 MILLIGRAM/M?
  2. CAPECITABINE [Suspect]
     Active Substance: CAPECITABINE
     Indication: Breast cancer metastatic
     Dosage: TWICE DAILY/GIVEN ON DAYS 1?14 OF A 21 DAY CYCLE?DAILY DOSE: 2000 MILLIGRAM/M?
  3. CAPECITABINE [Suspect]
     Active Substance: CAPECITABINE
     Indication: Metastases to lung
     Dosage: TWICE DAILY/GIVEN ON DAYS 1?14 OF A 21 DAY CYCLE?DAILY DOSE: 2000 MILLIGRAM/M?
  4. CAPECITABINE [Suspect]
     Active Substance: CAPECITABINE
     Indication: Metastases to liver
     Dosage: TWICE DAILY/GIVEN ON DAYS 1?14 OF A 21 DAY CYCLE?DAILY DOSE: 2000 MILLIGRAM/M?
  5. CAPECITABINE [Suspect]
     Active Substance: CAPECITABINE
     Indication: Hormone receptor negative HER2 positive breast cancer
     Dosage: TWICE DAILY/ON DAYS 1?14 OF A 21-DAY CYCLE. ?DAILY DOSE: 3000 MILLIGRAM/M?
  6. CAPECITABINE [Suspect]
     Active Substance: CAPECITABINE
     Indication: Breast cancer metastatic
     Dosage: TWICE DAILY/ON DAYS 1?14 OF A 21-DAY CYCLE. ?DAILY DOSE: 3000 MILLIGRAM/M?
  7. CAPECITABINE [Suspect]
     Active Substance: CAPECITABINE
     Indication: Metastases to lung
     Dosage: TWICE DAILY/ON DAYS 1?14 OF A 21-DAY CYCLE. ?DAILY DOSE: 3000 MILLIGRAM/M?
  8. CAPECITABINE [Suspect]
     Active Substance: CAPECITABINE
     Indication: Metastases to liver
     Dosage: TWICE DAILY/ON DAYS 1?14 OF A 21-DAY CYCLE. ?DAILY DOSE: 3000 MILLIGRAM/M?
  9. CAPECITABINE [Suspect]
     Active Substance: CAPECITABINE
     Indication: Hormone receptor negative HER2 positive breast cancer
     Dosage: TWICE DAILY/GIVEN ON DAYS 1?14 OF A 21 DAY CYCLE?DAILY DOSE: 2000 MILLIGRAM/M?
  10. CAPECITABINE [Suspect]
     Active Substance: CAPECITABINE
     Indication: Breast cancer metastatic
     Dosage: TWICE DAILY/GIVEN ON DAYS 1?14 OF A 21 DAY CYCLE?DAILY DOSE: 2000 MILLIGRAM/M?
  11. CAPECITABINE [Suspect]
     Active Substance: CAPECITABINE
     Indication: Metastases to lung
     Dosage: TWICE DAILY/GIVEN ON DAYS 1?14 OF A 21 DAY CYCLE?DAILY DOSE: 2000 MILLIGRAM/M?
  12. CAPECITABINE [Suspect]
     Active Substance: CAPECITABINE
     Indication: Metastases to liver
     Dosage: TWICE DAILY/GIVEN ON DAYS 1?14 OF A 21 DAY CYCLE?DAILY DOSE: 2000 MILLIGRAM/M?
  13. DOCETAXEL [Suspect]
     Active Substance: DOCETAXEL
     Indication: Breast cancer metastatic

REACTIONS (5)
  - Squamous cell carcinoma of skin [Unknown]
  - Squamous cell carcinoma of the oral cavity [Unknown]
  - Palmar-plantar erythrodysaesthesia syndrome [Unknown]
  - Actinic keratosis [Unknown]
  - Skin papilloma [Unknown]
